FAERS Safety Report 14154356 (Version 2)
Quarter: 2017Q4

REPORT INFORMATION
  Report Type: Spontaneous
  Country: JP (occurrence: JP)
  Receive Date: 20171102
  Receipt Date: 20171128
  Transmission Date: 20180321
  Serious: No
  Sender: FDA-Public Use
  Company Number: JP-ELI_LILLY_AND_COMPANY-JP201710012231

PATIENT
  Age: 54 Year
  Sex: Male

DRUGS (4)
  1. URITOS [Concomitant]
     Active Substance: IMIDAFENACIN
  2. ZALUTIA [Suspect]
     Active Substance: TADALAFIL
     Indication: PRODUCT USED FOR UNKNOWN INDICATION
     Route: 048
  3. BETANIS [Concomitant]
     Active Substance: MIRABEGRON
  4. BLADDERON [Concomitant]
     Active Substance: FLAVOXATE

REACTIONS (1)
  - Vision blurred [Recovered/Resolved]
